FAERS Safety Report 5202057-7 (Version None)
Quarter: 2007Q1

REPORT INFORMATION
  Report Type: 
  Country: None (occurrence: None)
  Receive Date: 20070109
  Receipt Date: 20061227
  Transmission Date: 20070707
  Serious: Yes (Other)
  Sender: FDA-Public Use
  Company Number: PHNU2006HU04306

PATIENT
  Sex: Female
  Weight: 72 kg

DRUGS (4)
  1. TEGRETOL [Suspect]
     Dosage: 400 MG/DAY
     Route: 048
     Dates: start: 20050605
  2. RISPERDAL [Suspect]
     Dosage: 6 MG/DAY
     Route: 048
     Dates: start: 20050605, end: 20050618
  3. RISPERDAL [Suspect]
     Dosage: 4 MG/DAY
     Route: 048
     Dates: start: 20050619
  4. VALPROATE SODIUM [Suspect]
     Dosage: 600 MG/DAY
     Route: 048
     Dates: start: 20050605

REACTIONS (3)
  - DRUG INTERACTION [None]
  - OEDEMA [None]
  - WEIGHT INCREASED [None]
